FAERS Safety Report 4851164-7 (Version None)
Quarter: 2005Q4

REPORT INFORMATION
  Report Type: 
  Country: None (occurrence: None)
  Receive Date: 20051208
  Receipt Date: 20051128
  Transmission Date: 20060501
  Serious: Yes (Death, Hospitalization, Other)
  Sender: FDA-Public Use
  Company Number: 2005BI019041

PATIENT
  Age: 37 Year
  Sex: Female
  Weight: 49.8957 kg

DRUGS (13)
  1. AVONEX [Suspect]
     Indication: MULTIPLE SCLEROSIS
     Dosage: 30 UG; QW; IM
     Dates: start: 20000101
  2. AVONEX [Suspect]
     Indication: MULTIPLE SCLEROSIS
     Dosage: 30 UG; QW; IM
     Route: 030
     Dates: end: 20050926
  3. DITROPAN [Concomitant]
  4. VISTARIL [Concomitant]
  5. ASCORBIC ACID [Concomitant]
  6. HALCION [Concomitant]
  7. VALIUM [Concomitant]
  8. SOMA [Concomitant]
  9. EFFEXOR [Concomitant]
  10. DILANTIN [Concomitant]
  11. DURAGESIC-100 [Concomitant]
  12. MORPHINE SULFATE [Concomitant]
  13. MACROBID [Concomitant]

REACTIONS (5)
  - DELIRIUM [None]
  - DIZZINESS [None]
  - INFLUENZA LIKE ILLNESS [None]
  - LOBAR PNEUMONIA [None]
  - SEPTIC SHOCK [None]
